FAERS Safety Report 10213346 (Version 2)
Quarter: 2014Q2

REPORT INFORMATION
  Report Type: Spontaneous
  Country: FR (occurrence: None)
  Receive Date: 20140529
  Receipt Date: 20140604
  Transmission Date: 20141212
  Serious: Yes (Death, Life-Threatening)
  Sender: FDA-Public Use
  Company Number: FK201401970

PATIENT
  Age: 69 Year
  Sex: Female

DRUGS (14)
  1. PROPOFOL [Suspect]
     Indication: INDUCTION OF ANAESTHESIA
     Route: 041
     Dates: start: 20131216, end: 20131216
  2. DETENSIEL [Suspect]
     Indication: PRODUCT USED FOR UNKNOWN INDICATION
     Route: 048
     Dates: start: 20131216
  3. INEXIUM (ESOMEPRAZOLE MAGNESIUM) (ESOMEPRAZOLE MAGNESIUM) [Suspect]
     Indication: PRODUCT USED FOR UNKNOWN INDICATION
     Route: 048
     Dates: start: 20131215, end: 20131216
  4. LYRICA (PREGABALIN) [Suspect]
     Indication: PRODUCT USED FOR UNKNOWN INDICATION
     Route: 048
     Dates: start: 20131215, end: 20131216
  5. LIDOCAINE AGUETTANT [Suspect]
     Indication: PERIOPERATIVE ANALGESIA
     Route: 041
     Dates: start: 20131216
  6. ULTIVA (REMIFENTANIL HYDROCHLORIDE) (REMIFENTANIL?HYDROCHLORIDE) [Suspect]
     Indication: INDUCTION OF ANAESTHESIA
     Route: 041
     Dates: start: 20131216, end: 20131216
  7. ATRACURIUM [Suspect]
     Indication: NEUROMUSCULAR BLOCKING THERAPY
     Route: 040
     Dates: start: 20131216, end: 20131216
  8. KETAMINE [Suspect]
     Indication: PERIOPERATIVE ANALGESIA
     Dosage: 40 MG, 10MG/HR, INTRAVENOUS BOLUS
     Route: 040
     Dates: start: 20131216, end: 20131216
  9. CEFAZOLINE [Suspect]
     Indication: ANTIBIOTIC PROPHYLAXIS
     Route: 042
     Dates: start: 20131216, end: 20131216
  10. DEXAMETHASONE [Suspect]
     Indication: PROCEDURAL NAUSEA
     Route: 042
     Dates: start: 20131216
  11. PARACETAMOL [Suspect]
     Indication: POSTOPERATIVE ANALGESIA
     Route: 042
     Dates: start: 20131216
  12. KETOPROFENE [Suspect]
     Indication: POSTOPERATIVE ANALGESIA
     Route: 042
     Dates: start: 20131216
  13. ACUPAN [Suspect]
     Indication: POSTOPERATIVE ANALGESIA
     Route: 042
     Dates: start: 20131216
  14. MORPHINE [Suspect]
     Indication: POSTOPERATIVE ANALGESIA
     Route: 042
     Dates: start: 20131216

REACTIONS (14)
  - Pulseless electrical activity [None]
  - Cardiac arrest [None]
  - Ventricular fibrillation [None]
  - Electrocardiogram ST segment depression [None]
  - Ejection fraction decreased [None]
  - Hypokinesia [None]
  - Troponin increased [None]
  - Lactic acidosis [None]
  - Haemodynamic instability [None]
  - Poor peripheral circulation [None]
  - Electrocardiogram repolarisation abnormality [None]
  - Metabolic acidosis [None]
  - Hypotension [None]
  - Toxicity to various agents [None]
